FAERS Safety Report 9664904 (Version 1)
Quarter: 2013Q4

REPORT INFORMATION
  Report Type: Spontaneous
  Country: DE (occurrence: DE)
  Receive Date: 20131101
  Receipt Date: 20131101
  Transmission Date: 20140711
  Serious: Yes (Other)
  Sender: FDA-Public Use
  Company Number: DE-GLAXOSMITHKLINE-D0081209A

PATIENT
  Sex: Male
  Weight: 66 kg

DRUGS (3)
  1. REVOLADE [Suspect]
     Indication: IMMUNE THROMBOCYTOPENIC PURPURA
     Dosage: 50MG UNKNOWN
     Route: 048
     Dates: start: 20130117, end: 20130617
  2. MICARDIS [Concomitant]
     Dosage: 80MG PER DAY
     Route: 048
  3. TORASEMID [Concomitant]
     Dosage: 10MG PER DAY
     Route: 048

REACTIONS (3)
  - Vasculitis [Recovered/Resolved]
  - Rash [Recovered/Resolved]
  - Arthritis [Recovered/Resolved]
